FAERS Safety Report 5236363-7 (Version None)
Quarter: 2007Q1

REPORT INFORMATION
  Report Type: 
  Country: None (occurrence: None)
  Receive Date: 20061208
  Receipt Date: 20060202
  Transmission Date: 20070707
  Serious: Yes (Other)
  Sender: FDA-Public Use
  Company Number: 2006UW01858

PATIENT
  Age: 79 Year
  Sex: Female
  Weight: 68 kg

DRUGS (5)
  1. CRESTOR [Suspect]
     Indication: BLOOD CHOLESTEROL INCREASED
     Dosage: 5 MG QD PO
     Route: 048
     Dates: start: 20060125
  2. TRIAMTEREN [Concomitant]
  3. VITAMINS [Concomitant]
  4. FLAX OIL [Concomitant]
  5. FISH OIL [Concomitant]

REACTIONS (1)
  - PAROSMIA [None]
